FAERS Safety Report 12791428 (Version 9)
Quarter: 2021Q4

REPORT INFORMATION
  Report Type: Report from Study
  Country: CO (occurrence: CO)
  Receive Date: 20160929
  Receipt Date: 20211231
  Transmission Date: 20220304
  Serious: Yes (Life-Threatening, Hospitalization, Other)
  Sender: FDA-Public Use
  Company Number: PHHY2015CO136152

PATIENT
  Age: 69 Year
  Sex: Male
  Weight: 64 kg

DRUGS (6)
  1. TASIGNA [Suspect]
     Active Substance: NILOTINIB
     Indication: Chronic myeloid leukaemia
     Dosage: 150 MG, Q12H
     Route: 048
     Dates: start: 20110115
  2. TASIGNA [Suspect]
     Active Substance: NILOTINIB
     Dosage: 2 DOSAGE FORM, Q12H (150 MG CAPSULE)
     Route: 048
     Dates: start: 20120314
  3. TASIGNA [Suspect]
     Active Substance: NILOTINIB
     Dosage: 300 MG, Q12H
     Route: 048
     Dates: start: 20120314
  4. TASIGNA [Suspect]
     Active Substance: NILOTINIB
     Dosage: 300 MG, Q12H
     Route: 048
     Dates: start: 20180217
  5. TASIGNA [Suspect]
     Active Substance: NILOTINIB
     Dosage: 300 MG, Q12H
     Route: 048
  6. IRBESARTAN [Concomitant]
     Active Substance: IRBESARTAN
     Indication: Blood pressure abnormal
     Dosage: 150 MG, QD
     Route: 048

REACTIONS (21)
  - Apparent death [Unknown]
  - Blood pressure decreased [Unknown]
  - Pulmonary hypertension [Unknown]
  - Splenitis [Unknown]
  - Urinary tract infection [Unknown]
  - Fall [Recovering/Resolving]
  - Retinal detachment [Unknown]
  - Blindness [Unknown]
  - Nephrolithiasis [Unknown]
  - Concomitant disease aggravated [Unknown]
  - Thrombosis [Unknown]
  - Eye haemorrhage [Not Recovered/Not Resolved]
  - Investigation abnormal [Unknown]
  - Influenza [Unknown]
  - Cough [Unknown]
  - Asthma [Unknown]
  - Contusion [Recovering/Resolving]
  - Polymerase chain reaction positive [Recovered/Resolved]
  - Hypertension [Unknown]
  - Hypersensitivity [Unknown]
  - Therapeutic response decreased [Unknown]

NARRATIVE: CASE EVENT DATE: 20160913
